FAERS Safety Report 13330278 (Version 3)
Quarter: 2017Q2

REPORT INFORMATION
  Report Type: Spontaneous
  Country: DK (occurrence: DK)
  Receive Date: 20170314
  Receipt Date: 20170516
  Transmission Date: 20170830
  Serious: Yes (Death, Life-Threatening, Hospitalization, Other)
  Sender: FDA-Public Use
  Company Number: DK-AUROBINDO-AUR-APL-2017-30701

PATIENT
  Age: 84 Year
  Sex: Male
  Weight: 98 kg

DRUGS (20)
  1. SIMVASTATIN. [Suspect]
     Active Substance: SIMVASTATIN
     Route: 048
  2. TRANDOLAPRIL. [Suspect]
     Active Substance: TRANDOLAPRIL
     Indication: SUICIDE ATTEMPT
     Route: 048
  3. ACETYLSALICYLIC ACID [Suspect]
     Active Substance: ASPIRIN
     Route: 048
  4. MIRTAZAPINE. [Suspect]
     Active Substance: MIRTAZAPINE
     Route: 048
  5. METOPROLOL. [Suspect]
     Active Substance: METOPROLOL
     Indication: SUICIDE ATTEMPT
     Route: 065
  6. LIDOCAINE. [Concomitant]
     Active Substance: LIDOCAINE
     Indication: PRODUCT USED FOR UNKNOWN INDICATION
  7. NIFEDIPINE. [Suspect]
     Active Substance: NIFEDIPINE
     Route: 048
  8. PARACETAMOL [Suspect]
     Active Substance: ACETAMINOPHEN
     Route: 048
  9. SIMVASTATIN. [Suspect]
     Active Substance: SIMVASTATIN
     Indication: SUICIDE ATTEMPT
     Route: 048
  10. MIRTAZAPINE. [Suspect]
     Active Substance: MIRTAZAPINE
     Indication: SUICIDE ATTEMPT
     Dosage: UNK
     Route: 048
  11. NIFEDIPINE. [Suspect]
     Active Substance: NIFEDIPINE
     Indication: SUICIDE ATTEMPT
     Route: 048
  12. MORPHINE [Concomitant]
     Active Substance: MORPHINE
     Indication: PRODUCT USED FOR UNKNOWN INDICATION
  13. IVABRADINE [Suspect]
     Active Substance: IVABRADINE
     Indication: SUICIDE ATTEMPT
     Route: 048
  14. DIAZEPAM. [Concomitant]
     Active Substance: DIAZEPAM
     Indication: PRODUCT USED FOR UNKNOWN INDICATION
  15. TRANDOLAPRIL. [Suspect]
     Active Substance: TRANDOLAPRIL
     Route: 048
  16. ACETYLSALICYLIC ACID [Suspect]
     Active Substance: ASPIRIN
     Indication: SUICIDE ATTEMPT
     Route: 048
  17. OXAZEPAM. [Suspect]
     Active Substance: OXAZEPAM
     Indication: PRODUCT USED FOR UNKNOWN INDICATION
     Route: 048
  18. OXAZEPAM. [Suspect]
     Active Substance: OXAZEPAM
     Route: 048
  19. PARACETAMOL [Suspect]
     Active Substance: ACETAMINOPHEN
     Indication: PRODUCT USED FOR UNKNOWN INDICATION
     Route: 048
  20. IVABRADINE [Suspect]
     Active Substance: IVABRADINE
     Route: 048

REACTIONS (13)
  - Toxicity to various agents [Fatal]
  - Oesophageal obstruction [Fatal]
  - Bezoar [Fatal]
  - Loss of consciousness [Unknown]
  - Mental status changes [Unknown]
  - Cardiovascular disorder [Unknown]
  - Overdose [Fatal]
  - Pneumonia aspiration [Unknown]
  - Respiratory disorder [Unknown]
  - Completed suicide [Fatal]
  - Hypotension [Unknown]
  - Body temperature increased [Unknown]
  - Oesophageal haemorrhage [Fatal]
